FAERS Safety Report 9064435 (Version 1)
Quarter: 2013Q1

REPORT INFORMATION
  Report Type: Spontaneous
  Country: AU (occurrence: AU)
  Receive Date: 20130213
  Receipt Date: 20130213
  Transmission Date: 20140127
  Serious: Yes (Death)
  Sender: FDA-Public Use
  Company Number: AU-B.I. PHARMACEUTICALS,INC./RIDGEFIELD-2013-AU-00117AU

PATIENT
  Age: 77 Year
  Sex: Male

DRUGS (26)
  1. PRADAXA [Suspect]
     Indication: ATRIAL FIBRILLATION
     Dosage: 220 MG
  2. ACTONEL [Concomitant]
     Dosage: 5 MG
  3. AUGMENTIN DUO [Concomitant]
     Dosage: 500MG/125 MG
  4. CECLOR CD [Concomitant]
     Dosage: 750 MG
  5. CHAMPIX [Concomitant]
  6. CRAMPEZE [Concomitant]
  7. EES [Concomitant]
     Dosage: 1600 MG
  8. KARVEZIDE [Concomitant]
     Dosage: 300/12.5
  9. LIPITOR [Concomitant]
     Dosage: 40 MG
  10. LIQUIFILM FORTE [Concomitant]
     Dosage: 3% 15MLS
  11. MAREVAN [Concomitant]
     Dosage: 5 MG PRN
  12. MAXIDEX [Concomitant]
     Dosage: TAKE 1, 4 TIMES A DAY
  13. MINIPRESS [Concomitant]
     Dosage: 2 MG
  14. NORVASC [Concomitant]
     Dosage: 10 MG
  15. NOTEN [Concomitant]
     Dosage: TAKE HALF MANE, 1 NOCTE
  16. PANADOL OSTEO [Concomitant]
  17. PANAFCORT [Concomitant]
     Dosage: 2 DAILY FOR 3 DAYS, THEN ONE DAILY FOR 3 DAYS WITH FOOD
  18. PANAMAX [Concomitant]
     Dosage: TAKE 2 Q4HR PRN
  19. PHYSIOTENS [Concomitant]
     Dosage: 0.4 MG
  20. QUINATE [Concomitant]
     Dosage: 300 MG
  21. RULIDE [Concomitant]
     Dosage: 300 NG
  22. SERETIDE [Concomitant]
     Dosage: 250/25
     Route: 055
  23. SOMAC [Concomitant]
     Dosage: 40 MG
  24. SPIRIVA [Concomitant]
  25. TEMAZA [Concomitant]
     Dosage: 10 MG
  26. VENTOLIN [Concomitant]
     Dosage: TAKE 2 Q4 H PRN

REACTIONS (1)
  - Pneumonia [Fatal]
